FAERS Safety Report 20061016 (Version 1)
Quarter: 2021Q4

REPORT INFORMATION
  Report Type: Spontaneous
  Country: TH (occurrence: None)
  Receive Date: 20211112
  Receipt Date: 20211112
  Transmission Date: 20220303
  Serious: Yes (Other)
  Sender: FDA-Public Use
  Company Number: TH-ROCHE-2951062

PATIENT
  Age: 48 Year
  Sex: Male

DRUGS (2)
  1. ATEZOLIZUMAB [Suspect]
     Active Substance: ATEZOLIZUMAB
     Indication: Hepatocellular carcinoma
     Route: 065
  2. BEVACIZUMAB [Suspect]
     Active Substance: BEVACIZUMAB
     Indication: Hepatocellular carcinoma
     Route: 065

REACTIONS (7)
  - Renal cyst [Unknown]
  - Metastases to lung [Unknown]
  - Hepatocellular carcinoma [Unknown]
  - Diaphragmatic disorder [Unknown]
  - Hepatic cirrhosis [Unknown]
  - Weight increased [Unknown]
  - Proteinuria [Unknown]
